FAERS Safety Report 10042674 (Version 2)
Quarter: 2014Q2

REPORT INFORMATION
  Report Type: Spontaneous
  Country: US (occurrence: None)
  Receive Date: 20140325
  Receipt Date: 20140423
  Transmission Date: 20141212
  Serious: Yes (Hospitalization)
  Sender: FDA-Public Use
  Company Number: VAL_03041_2014

PATIENT
  Age: 56 Year
  Sex: Female
  Weight: 136 kg

DRUGS (12)
  1. LOPRESSOR [Suspect]
     Indication: HYPERTENSION
     Dosage: (DF ORAL)
     Route: 048
     Dates: start: 20110127
  2. VERAPAMIL HCL [Suspect]
     Indication: HYPERTENSION
     Dosage: (DF ORAL)
     Route: 048
     Dates: start: 20131203
  3. CAPTOPRIL [Suspect]
     Indication: HYPERTENSION
     Dosage: (DF ORAL)
     Route: 048
     Dates: start: 20130216
  4. AXITINIB [Suspect]
     Indication: MALIGNANT MELANOMA
     Dates: start: 20131120
  5. LASIX [Suspect]
     Indication: HYPERTENSION
     Dosage: (DF ORAL)
     Route: 048
     Dates: start: 20130218
  6. LYRICA [Concomitant]
  7. ALLOPURINOL [Concomitant]
  8. ASPIRIN [Concomitant]
  9. COLACE [Concomitant]
  10. GLIMEPIRIDE W/METFORMIN [Concomitant]
  11. KLOR-CON [Concomitant]
  12. PRAVASTATIN SODIUM [Concomitant]

REACTIONS (5)
  - Sinus bradycardia [None]
  - Hyperkalaemia [None]
  - Hypotension [None]
  - Hypertension [None]
  - Haemoglobin decreased [None]
